FAERS Safety Report 4475364-3 (Version None)
Quarter: 2004Q4

REPORT INFORMATION
  Report Type: 
  Country: None (occurrence: None)
  Receive Date: 20041014
  Receipt Date: 20041014
  Transmission Date: 20050328
  Serious: Yes (Life-Threatening, Hospitalization)
  Sender: FDA-Public Use
  Company Number: None

PATIENT
  Age: 70 Year
  Sex: Male
  Weight: 99.7913 kg

DRUGS (1)
  1. VIOXX [Suspect]
     Indication: ARTHRALGIA
     Dosage: 1 DAILY
     Dates: start: 20010523, end: 20010708

REACTIONS (4)
  - GASTROINTESTINAL ULCER HAEMORRHAGE [None]
  - MALAISE [None]
  - MOBILITY DECREASED [None]
  - NAUSEA [None]
